FAERS Safety Report 8854294 (Version 2)
Quarter: 2012Q4

REPORT INFORMATION
  Report Type: 
  Country: JP (occurrence: JP)
  Receive Date: 20121023
  Receipt Date: 20121101
  Transmission Date: 20130627
  Serious: Yes (Hospitalization)
  Sender: FDA-Public Use
  Company Number: JP-PFIZER INC-2012258435

PATIENT
  Age: 12 Year
  Sex: Female

DRUGS (1)
  1. GENOTROPIN TC [Suspect]
     Dosage: 0.6 mg, 1x/day
     Route: 058
     Dates: start: 20120825

REACTIONS (1)
  - Fracture [Recovered/Resolved]
